FAERS Safety Report 24188316 (Version 1)
Quarter: 2024Q3

REPORT INFORMATION
  Report Type: Spontaneous
  Country: US (occurrence: None)
  Receive Date: 20240807
  Receipt Date: 20240807
  Transmission Date: 20241017
  Serious: No
  Sender: Public
  Company Number: None

PATIENT

DRUGS (1)
  1. SUMATRIPTAN [Suspect]
     Active Substance: SUMATRIPTAN

REACTIONS (4)
  - Cerebrovascular accident [None]
  - Myelin oligodendrocyte glycoprotein antibody-associated disease [None]
  - Product communication issue [None]
  - Extra dose administered [None]
